FAERS Safety Report 20690581 (Version 1)
Quarter: 2022Q2

REPORT INFORMATION
  Report Type: Spontaneous
  Country: US (occurrence: US)
  Receive Date: 20220408
  Receipt Date: 20220408
  Transmission Date: 20220721
  Serious: No
  Sender: FDA-Public Use
  Company Number: US-AMGEN-USASP2022061419

PATIENT
  Sex: Male

DRUGS (1)
  1. OTEZLA [Suspect]
     Active Substance: APREMILAST
     Indication: Psoriasis
     Dosage: OTEZLA TITRATION PACK, 28 DAY (10, 20 AND 30)
     Route: 065

REACTIONS (2)
  - Influenza [Recovered/Resolved]
  - Psoriasis [Unknown]
